FAERS Safety Report 6626994-1 (Version None)
Quarter: 2010Q1

REPORT INFORMATION
  Report Type: 
  Country: None (occurrence: None)
  Receive Date: 20100311
  Receipt Date: 20100305
  Transmission Date: 20100710
  Serious: Yes (Hospitalization)
  Sender: FDA-Public Use
  Company Number: CH-ROXANE LABORATORIES, INC.-2010-DE-01178GD

PATIENT
  Sex: Female

DRUGS (9)
  1. OXAZEPAM [Suspect]
     Dosage: 15 MG
  2. CITALOPRAM HYDROBROMIDE [Suspect]
     Indication: DEPRESSION
     Dosage: 40 MG
  3. OLANZAPINE [Suspect]
     Indication: SCHIZOPHRENIA, PARANOID TYPE
     Dosage: 1.25 MG
  4. DONEPEZIL HCL [Concomitant]
     Indication: DEMENTIA ALZHEIMER'S TYPE
     Dosage: 10 MG
  5. GINKGO PREPARATION [Concomitant]
     Indication: DEMENTIA ALZHEIMER'S TYPE
  6. METHOTREXATE [Concomitant]
     Indication: RHEUMATOID ARTHRITIS
     Dosage: 2.5 MG ONCE WEEKLY
  7. PREDNISONE [Concomitant]
     Indication: RHEUMATOID ARTHRITIS
     Dosage: 1.25 MG
  8. FOLIC ACID [Concomitant]
     Dosage: 1 MG
  9. ATORVASTATIN CALCIUM [Concomitant]
     Dosage: 20 MG

REACTIONS (2)
  - LONG QT SYNDROME [None]
  - SYNCOPE [None]
